FAERS Safety Report 10654409 (Version 1)
Quarter: 2014Q4

REPORT INFORMATION
  Report Type: Spontaneous
  Country: US (occurrence: US)
  Receive Date: 20141216
  Receipt Date: 20141216
  Transmission Date: 20150529
  Serious: Yes (Other)
  Sender: FDA-Public Use
  Company Number: US-TEVA-528830USA

PATIENT
  Age: 45 Year
  Sex: Male

DRUGS (2)
  1. SUTENT [Suspect]
     Active Substance: SUNITINIB MALATE
     Dates: start: 20141019, end: 20141023
  2. WARFARIN [Suspect]
     Active Substance: WARFARIN

REACTIONS (1)
  - Tumour rupture [Unknown]

NARRATIVE: CASE EVENT DATE: 20141023
